FAERS Safety Report 5767004-8 (Version None)
Quarter: 2008Q2

REPORT INFORMATION
  Report Type: 
  Country: None (occurrence: None)
  Receive Date: 20080612
  Receipt Date: 20080508
  Transmission Date: 20081010
  Serious: Yes (Other)
  Sender: FDA-Public Use
  Company Number: US-JNJFOC-20080305284

PATIENT
  Sex: Female
  Weight: 52.62 kg

DRUGS (4)
  1. REMICADE [Suspect]
     Route: 042
  2. REMICADE [Suspect]
     Indication: PSORIASIS
     Dosage: WEEK 0
     Route: 042
  3. REMICADE [Suspect]
     Indication: PSORIATIC ARTHROPATHY
     Dosage: WEEK 0
     Route: 042
  4. PREDNISONE TAB [Concomitant]

REACTIONS (6)
  - ARTHRALGIA [None]
  - DYSPNOEA [None]
  - HYPERSENSITIVITY [None]
  - RASH [None]
  - TRISMUS [None]
  - WHEEZING [None]
